FAERS Safety Report 19591851 (Version 3)
Quarter: 2021Q3

REPORT INFORMATION
  Report Type: Report from Study
  Country: FR (occurrence: FR)
  Receive Date: 20210721
  Receipt Date: 20210818
  Transmission Date: 20211014
  Serious: Yes (Hospitalization, Other)
  Sender: FDA-Public Use
  Company Number: FR-ROCHE-2860180

PATIENT
  Age: 75 Year
  Sex: Female

DRUGS (25)
  1. LOVENOX [Concomitant]
     Active Substance: ENOXAPARIN SODIUM
     Route: 058
     Dates: start: 20210414, end: 20210430
  2. DEXAMETHASONE. [Suspect]
     Active Substance: DEXAMETHASONE
     Route: 042
     Dates: start: 20210509, end: 20210512
  3. AMOXICILLIN;CLAVULANIC ACID [Concomitant]
     Active Substance: AMOXICILLIN\CLAVULANIC ACID
  4. CEFOTAXIME [Concomitant]
     Active Substance: CEFOTAXIME SODIUM
  5. NACL [Concomitant]
     Active Substance: SODIUM CHLORIDE
  6. TRIMEBUTINE [Concomitant]
     Active Substance: TRIMEBUTINE
  7. TOCILIZUMAB. [Suspect]
     Active Substance: TOCILIZUMAB
     Indication: COVID-19
     Dosage: FORM STRENGTH : 20 MG/ML
     Route: 042
     Dates: start: 20210416, end: 20210416
  8. GLUCOSE [Concomitant]
     Active Substance: DEXTROSE
  9. PANTOPRAZOLE [Concomitant]
     Active Substance: PANTOPRAZOLE
  10. KCL [Concomitant]
     Active Substance: POTASSIUM CHLORIDE
  11. ENOXAPARINE SODIQUE [Concomitant]
     Active Substance: ENOXAPARIN SODIUM
  12. DEXAMETHASONE. [Suspect]
     Active Substance: DEXAMETHASONE
     Indication: COVID-19
     Dosage: FORM STRENGTH : 4 MG/ML
     Route: 042
     Dates: start: 20210416, end: 20210421
  13. PARACETAMOL [Concomitant]
     Active Substance: ACETAMINOPHEN
  14. MACROGOL [Concomitant]
     Active Substance: POLYETHYLENE GLYCOLS
  15. ZOPICLONE [Concomitant]
     Active Substance: ZOPICLONE
  16. NEFOPAM [Concomitant]
     Active Substance: NEFOPAM
  17. FUROSEMIDE. [Concomitant]
     Active Substance: FUROSEMIDE
  18. LANSOPRAZOLE. [Concomitant]
     Active Substance: LANSOPRAZOLE
  19. SPIRAMYCINE [Concomitant]
     Active Substance: SPIRAMYCIN
  20. PIPERACILLINE TAZOBACTAM [Concomitant]
     Active Substance: PIPERACILLIN SODIUM\TAZOBACTAM SODIUM
  21. PHLOROGLUCINOL [Concomitant]
     Active Substance: PHLOROGLUCINOL
  22. TOCILIZUMAB. [Suspect]
     Active Substance: TOCILIZUMAB
     Route: 042
     Dates: start: 20210418, end: 20210418
  23. DEXAMETHASONE. [Suspect]
     Active Substance: DEXAMETHASONE
     Route: 042
     Dates: start: 20210422, end: 20210426
  24. TINZAPARINE SODIQUE [Concomitant]
     Active Substance: TINZAPARIN SODIUM
  25. TRAMADOL. [Concomitant]
     Active Substance: TRAMADOL

REACTIONS (3)
  - Pulmonary embolism [Recovering/Resolving]
  - Abdominal wall haematoma [Not Recovered/Not Resolved]
  - Pleurisy [Recovered/Resolved]

NARRATIVE: CASE EVENT DATE: 20210423
